FAERS Safety Report 10577688 (Version 2)
Quarter: 2014Q4

REPORT INFORMATION
  Report Type: Spontaneous
  Country: US (occurrence: US)
  Receive Date: 20141111
  Receipt Date: 20141111
  Transmission Date: 20150529
  Serious: Yes (Other)
  Sender: FDA-Public Use
  Company Number: US-B.I. PHARMACEUTICALS,INC./RIDGEFIELD-2014-BI-39869BP

PATIENT
  Sex: Female
  Weight: 65.77 kg

DRUGS (1)
  1. MIRAPEX [Suspect]
     Active Substance: PRAMIPEXOLE DIHYDROCHLORIDE
     Indication: RESTLESS LEGS SYNDROME
     Route: 048
     Dates: start: 2004, end: 201401

REACTIONS (4)
  - Pathological gambling [Recovered/Resolved]
  - Compulsive shopping [Recovered/Resolved]
  - Suicidal ideation [Unknown]
  - Hypersexuality [Unknown]

NARRATIVE: CASE EVENT DATE: 2007
